FAERS Safety Report 6735112-0 (Version None)
Quarter: 2010Q2

REPORT INFORMATION
  Report Type: 
  Country: None (occurrence: None)
  Receive Date: 20100521
  Receipt Date: 20100518
  Transmission Date: 20101027
  Serious: Yes (Hospitalization, Other)
  Sender: FDA-Public Use
  Company Number: CN-PFIZER INC-2010060105

PATIENT
  Age: 70 Year
  Sex: Male

DRUGS (3)
  1. NORVASC [Suspect]
     Indication: HYPERTENSION
     Dosage: 5 MG, 1X/DAY
     Route: 048
     Dates: start: 19950101
  2. VITAMIN B-12 [Concomitant]
     Dosage: UNK
     Route: 048
  3. SALVIA MILTIORRHIZA [Concomitant]
     Route: 048

REACTIONS (5)
  - COLON CANCER [None]
  - DIZZINESS [None]
  - FALL [None]
  - INJURY [None]
  - OEDEMA PERIPHERAL [None]
